FAERS Safety Report 8030113 (Version 6)
Quarter: 2014Q3

REPORT INFORMATION
  Report Type: Spontaneous
  Country: JP (occurrence: JP)
  Receive Date: 20110712
  Receipt Date: 20140918
  Transmission Date: 20150326
  Serious: Yes (Hospitalization)
  Sender: FDA-Public Use
  Company Number: JP-ELI_LILLY_AND_COMPANY-JP201106006220

PATIENT
  Age: 36 Year
  Sex: Female
  Weight: 24.6 kg

DRUGS (5)
  1. PAXIL [Suspect]
     Active Substance: PAROXETINE HYDROCHLORIDE
     Dosage: 20 MG, UNK
     Route: 048
  2. ZYPREXA [Suspect]
     Active Substance: OLANZAPINE
     Indication: ANOREXIA NERVOSA
     Dosage: 2.5 MG, QD
     Route: 048
     Dates: start: 20110330, end: 20110620
  3. PAXIL [Suspect]
     Active Substance: PAROXETINE HYDROCHLORIDE
     Indication: ANOREXIA NERVOSA
     Dosage: 10 MG, UNK
     Route: 048
     Dates: start: 20100810
  4. MEILAX [Concomitant]
     Active Substance: ETHYL LOFLAZEPATE
     Indication: ANOREXIA NERVOSA
     Dosage: UNK
     Route: 048
     Dates: start: 20110419, end: 20110629
  5. SOLANAX [Concomitant]
     Active Substance: ALPRAZOLAM
     Indication: ANOREXIA NERVOSA
     Dosage: 0.4 MG, PRN
     Route: 048
     Dates: start: 20110330

REACTIONS (4)
  - Off label use [Recovered/Resolved]
  - Hypoglycaemia [Recovered/Resolved]
  - Blood insulin increased [Recovered/Resolved]
  - Wrong technique in drug usage process [Recovered/Resolved]

NARRATIVE: CASE EVENT DATE: 2011
